FAERS Safety Report 9183732 (Version 1)
Quarter: 2013Q1

REPORT INFORMATION
  Report Type: Spontaneous
  Country: US (occurrence: US)
  Receive Date: 20130322
  Receipt Date: 20130322
  Transmission Date: 20140127
  Serious: Yes (Other)
  Sender: FDA-Public Use
  Company Number: US-BRISTOL-MYERS SQUIBB COMPANY-16594673

PATIENT
  Age: 52 Year
  Sex: Male

DRUGS (2)
  1. ERBITUX [Suspect]
     Indication: METASTATIC SQUAMOUS CELL CARCINOMA
     Dosage: 4TH + 5TH 13APR12,CYC 8 ON 04MAY12
     Route: 042
     Dates: start: 20120316
  2. LORTAB [Concomitant]
     Dosage: 1 DF : 10/325MG

REACTIONS (1)
  - Skin toxicity [Not Recovered/Not Resolved]
